FAERS Safety Report 7380433-4 (Version None)
Quarter: 2011Q1

REPORT INFORMATION
  Report Type: 
  Country: None (occurrence: None)
  Receive Date: 20110329
  Receipt Date: 20110318
  Transmission Date: 20110831
  Serious: Yes (Hospitalization)
  Sender: FDA-Public Use
  Company Number: JP-JNJFOC-20110303206

PATIENT
  Sex: Male

DRUGS (2)
  1. RIUP %5 [Suspect]
     Indication: ANDROGENETIC ALOPECIA
     Route: 061
  2. RIUP %5 [Suspect]
     Route: 061

REACTIONS (1)
  - DUODENAL ULCER [None]
